FAERS Safety Report 6183778-9 (Version None)
Quarter: 2009Q2

REPORT INFORMATION
  Report Type: 
  Country: None (occurrence: None)
  Receive Date: 20090508
  Receipt Date: 20090330
  Transmission Date: 20091009
  Serious: No
  Sender: FDA-Public Use
  Company Number: A0776171A

PATIENT
  Sex: Male

DRUGS (1)
  1. ALTABAX [Suspect]
     Indication: DRUG USE FOR UNKNOWN INDICATION
     Dosage: 1APP UNKNOWN
     Route: 061

REACTIONS (2)
  - PAIN [None]
  - SKIN IRRITATION [None]
